FAERS Safety Report 20662876 (Version 2)
Quarter: 2022Q2

REPORT INFORMATION
  Report Type: Report from Study
  Country: FR (occurrence: FR)
  Receive Date: 20220401
  Receipt Date: 20220408
  Transmission Date: 20220721
  Serious: Yes (Hospitalization)
  Sender: FDA-Public Use
  Company Number: FR-SERVIER-S22003156

PATIENT

DRUGS (9)
  1. PEGASPARGASE [Suspect]
     Active Substance: PEGASPARGASE
     Indication: Acute lymphocytic leukaemia
     Dosage: 2500 IU ON D4
     Route: 042
     Dates: start: 20211011
  2. VINCRISTINE [Suspect]
     Active Substance: VINCRISTINE
     Indication: Acute lymphocytic leukaemia
     Dosage: 1.5 MG ON D1, D8, AND D15
     Route: 042
     Dates: start: 20211008, end: 20211022
  3. DOXORUBICIN [Suspect]
     Active Substance: DOXORUBICIN
     Indication: Acute lymphocytic leukaemia
     Dosage: 25 MG ON D1, D8, AND D15
     Route: 042
     Dates: start: 20211008, end: 20211022
  4. DEXAMETHASONE [Suspect]
     Active Substance: DEXAMETHASONE
     Indication: Acute lymphocytic leukaemia
     Dosage: 9.9 MG ON D1 TO D21
     Route: 048
     Dates: start: 20211008, end: 20211028
  5. METHOTREXATE [Suspect]
     Active Substance: METHOTREXATE
     Indication: Acute lymphocytic leukaemia
     Dosage: 12 MG ON D4 AND D31
     Route: 037
     Dates: start: 20211011, end: 20211112
  6. CYTARABINE [Suspect]
     Active Substance: CYTARABINE
     Indication: Acute lymphocytic leukaemia
     Dosage: 30 MG ON D4 AND D31
     Route: 037
     Dates: start: 20211011, end: 20211112
  7. CYTARABINE [Suspect]
     Active Substance: CYTARABINE
     Dosage: 77.2 MG ON D1 TO D34, D38 TO D41
     Route: 042
     Dates: start: 20211112, end: 20211122
  8. CYCLOPHOSPHAMIDE [Suspect]
     Active Substance: CYCLOPHOSPHAMIDE
     Indication: Acute lymphocytic leukaemia
     Dosage: 990 MG ON D29
     Route: 042
     Dates: start: 20211110
  9. THIOGUANINE [Suspect]
     Active Substance: THIOGUANINE
     Indication: Acute lymphocytic leukaemia
     Dosage: 60 MG ON D29 TO D42
     Route: 048
     Dates: start: 20211110

REACTIONS (4)
  - Malaise [Recovered/Resolved]
  - Fall [Recovered/Resolved]
  - Cerebral haematoma [Recovered/Resolved]
  - Contusion [Recovered/Resolved]

NARRATIVE: CASE EVENT DATE: 20211123
